FAERS Safety Report 4367486-2 (Version None)
Quarter: 2004Q2

REPORT INFORMATION
  Report Type: 
  Country: None (occurrence: None)
  Receive Date: 20040601
  Receipt Date: 20040526
  Transmission Date: 20050107
  Serious: Yes (Other)
  Sender: FDA-Public Use
  Company Number: 200411183DE

PATIENT
  Age: 58 Year
  Sex: Male

DRUGS (2)
  1. KETEK [Suspect]
     Route: 048
     Dates: start: 20021212, end: 20021216
  2. ZOCOR [Suspect]
     Route: 048
     Dates: end: 20021201

REACTIONS (3)
  - ARTHRALGIA [None]
  - OSTEOARTHRITIS [None]
  - PAIN IN EXTREMITY [None]
